FAERS Safety Report 4497302-X (Version None)
Quarter: 2004Q4

REPORT INFORMATION
  Report Type: 
  Country: None (occurrence: None)
  Receive Date: 20041104
  Receipt Date: 20041019
  Transmission Date: 20050328
  Serious: Yes (Hospitalization)
  Sender: FDA-Public Use
  Company Number: 238379

PATIENT
  Sex: Female

DRUGS (1)
  1. ACTIVELLE [Suspect]

REACTIONS (2)
  - COAGULOPATHY [None]
  - VISUAL ACUITY REDUCED [None]
